FAERS Safety Report 8536396-9 (Version None)
Quarter: 2012Q3

REPORT INFORMATION
  Report Type: 
  Country: None (occurrence: None)
  Receive Date: 20120725
  Receipt Date: 20120718
  Transmission Date: 20120928
  Serious: Yes (Hospitalization, Other)
  Sender: FDA-Public Use
  Company Number: US-ROCHE-1060515

PATIENT
  Sex: Female
  Weight: 68.9 kg

DRUGS (10)
  1. FISH OIL [Concomitant]
  2. PANOBINOSTAT [Suspect]
     Indication: GLIOBLASTOMA
     Route: 048
     Dates: start: 20111209
  3. AVASTIN [Suspect]
     Indication: GLIOBLASTOMA
     Route: 042
     Dates: start: 20111209
  4. VITAMIN D [Concomitant]
  5. KEPPRA [Concomitant]
  6. HUMULIN N [Concomitant]
     Dosage: 20 UNITS QAM, 10 UNITS QPM AND 2 UNITS PRN
  7. ZOCOR [Concomitant]
  8. SYNTHROID [Concomitant]
  9. DECADRON [Concomitant]
  10. PRILOSEC [Concomitant]

REACTIONS (2)
  - RHINITIS ALLERGIC [None]
  - COUGH [None]
